FAERS Safety Report 13383378 (Version 1)
Quarter: 2017Q1

REPORT INFORMATION
  Report Type: Spontaneous
  Country: HR (occurrence: HR)
  Receive Date: 20170329
  Receipt Date: 20170329
  Transmission Date: 20170429
  Serious: Yes (Hospitalization)
  Sender: FDA-Public Use
  Company Number: HR-ASTRAZENECA-2017SE29363

PATIENT
  Age: 80 Year
  Sex: Female

DRUGS (8)
  1. CLOPIDOGREL [Interacting]
     Active Substance: CLOPIDOGREL BISULFATE
     Indication: ISCHAEMIC STROKE
     Route: 065
  2. BUDESONIDE AND FORMOTEROL [Concomitant]
     Route: 055
  3. PANTOPRAZOLE [Concomitant]
     Active Substance: PANTOPRAZOLE SODIUM
  4. CODEINE [Concomitant]
     Active Substance: CODEINE
  5. MAPROTILINE [Concomitant]
     Active Substance: MAPROTILINE
     Indication: INSOMNIA
  6. MAPROTILINE [Concomitant]
     Active Substance: MAPROTILINE
     Indication: ANXIETY
  7. CLONAZEPAM. [Concomitant]
     Active Substance: CLONAZEPAM
  8. ROSUVASTATIN. [Suspect]
     Active Substance: ROSUVASTATIN
     Indication: ISCHAEMIC STROKE
     Route: 048

REACTIONS (2)
  - Drug interaction [Recovered/Resolved]
  - Rhabdomyolysis [Recovered/Resolved]
